FAERS Safety Report 8522168-8 (Version None)
Quarter: 2012Q3

REPORT INFORMATION
  Report Type: 
  Country: None (occurrence: None)
  Receive Date: 20120719
  Receipt Date: 20120712
  Transmission Date: 20120928
  Serious: Yes (Hospitalization)
  Sender: FDA-Public Use
  Company Number: FR-PFIZER INC-2011297448

PATIENT
  Age: 15 Year
  Sex: Female

DRUGS (1)
  1. SOMATROPIN RDNA [Suspect]
     Indication: GROWTH HORMONE DEFICIENCY
     Dosage: 15.6 MG, WEEKLY
     Dates: start: 20090203, end: 20101125

REACTIONS (1)
  - INTRACRANIAL PRESSURE INCREASED [None]
